FAERS Safety Report 24981370 (Version 1)
Quarter: 2025Q1

REPORT INFORMATION
  Report Type: Spontaneous
  Country: US (occurrence: None)
  Receive Date: 20250218
  Receipt Date: 20250218
  Transmission Date: 20250408
  Serious: Yes (Hospitalization)
  Sender: FDA-CTU
  Company Number: None

PATIENT
  Age: 74 Year
  Sex: Male
  Weight: 66.8 kg

DRUGS (3)
  1. FLUOROURACIL [Suspect]
     Active Substance: FLUOROURACIL
     Dates: end: 20210831
  2. IRINOTECAN SUCROSOFATE [Suspect]
     Active Substance: IRINOTECAN SUCROSOFATE
     Dates: end: 20210831
  3. LEUCOVORIN CALCIUM [Suspect]
     Active Substance: LEUCOVORIN CALCIUM
     Dates: end: 20210831

REACTIONS (9)
  - Vomiting [None]
  - Foreign body in throat [None]
  - Abdominal pain [None]
  - Abdominal distension [None]
  - Constipation [None]
  - Nausea [None]
  - Small intestinal obstruction [None]
  - Gastric dilatation [None]
  - Vomiting [None]

NARRATIVE: CASE EVENT DATE: 20210831
